FAERS Safety Report 15578424 (Version 1)
Quarter: 2018Q4

REPORT INFORMATION
  Report Type: Spontaneous
  Country: US (occurrence: US)
  Receive Date: 20181029
  Receipt Date: 20181029
  Transmission Date: 20190205
  Serious: Yes (Life-Threatening, Hospitalization)
  Sender: FDA-Public Use
  Company Number: None

PATIENT
  Age: 86 Year
  Sex: Male

DRUGS (1)
  1. WARFARIN [Suspect]
     Active Substance: WARFARIN
     Dosage: ?          OTHER DOSE:11.25 MG;?
     Route: 048
     Dates: start: 20101119, end: 20180317

REACTIONS (14)
  - Rectal polyp [None]
  - Lower gastrointestinal haemorrhage [None]
  - Blood urea nitrogen/creatinine ratio increased [None]
  - Haematochezia [None]
  - Haemodynamic instability [None]
  - Diverticulum intestinal haemorrhagic [None]
  - Anorectal ulcer [None]
  - Tachycardia [None]
  - Intestinal mass [None]
  - International normalised ratio increased [None]
  - Haemorrhagic arteriovenous malformation [None]
  - Gastrointestinal ulcer [None]
  - Gastrointestinal erosion [None]
  - Anaemia [None]

NARRATIVE: CASE EVENT DATE: 20180317
